FAERS Safety Report 7518829-X (Version None)
Quarter: 2011Q2

REPORT INFORMATION
  Report Type: 
  Country: None (occurrence: None)
  Receive Date: 20110602
  Receipt Date: 20110524
  Transmission Date: 20111010
  Serious: Yes (Hospitalization, Other)
  Sender: FDA-Public Use
  Company Number: CA-US-EMD SERONO, INC.-7057713

PATIENT
  Sex: Female
  Weight: 64 kg

DRUGS (15)
  1. BACLOFEN [Concomitant]
  2. PLAVIX [Concomitant]
  3. DIVALPROEX SODIUM [Concomitant]
  4. LENOLTEC [Concomitant]
  5. OXYCONTIN [Concomitant]
  6. RAMIPRIL [Concomitant]
  7. TOPIRAMATE [Concomitant]
  8. CITALOPRAM HYDROBROMIDE [Concomitant]
  9. AMANTADINE HCL [Concomitant]
  10. DIAZEPAM [Concomitant]
  11. GABAPENTIN [Concomitant]
  12. FLUTICASONE PROPIONATE [Concomitant]
  13. REBIF [Suspect]
     Indication: RELAPSING-REMITTING MULTIPLE SCLEROSIS
     Dates: start: 20070206
  14. GABAPENTIN [Concomitant]
  15. THIAZIDE [Concomitant]

REACTIONS (21)
  - COMA [None]
  - URINARY TRACT INFECTION [None]
  - DIZZINESS [None]
  - DYSARTHRIA [None]
  - CLUSTER HEADACHE [None]
  - NUCLEAR MAGNETIC RESONANCE IMAGING BRAIN ABNORMAL [None]
  - MULTIPLE SCLEROSIS RELAPSE [None]
  - CEREBROVASCULAR ACCIDENT [None]
  - FALL [None]
  - AMNESIA [None]
  - HEAD INJURY [None]
  - BALANCE DISORDER [None]
  - CONTUSION [None]
  - CONFUSIONAL STATE [None]
  - SUBDURAL HAEMATOMA [None]
  - PARAESTHESIA [None]
  - MUSCLE SPASTICITY [None]
  - MOBILITY DECREASED [None]
  - PAIN [None]
  - MUSCULAR WEAKNESS [None]
  - DIPLOPIA [None]
